FAERS Safety Report 10997917 (Version 3)
Quarter: 2015Q2

REPORT INFORMATION
  Report Type: Spontaneous
  Country: US (occurrence: US)
  Receive Date: 20150408
  Receipt Date: 20150528
  Transmission Date: 20150821
  Serious: No
  Sender: FDA-Public Use
  Company Number: US-PFIZER INC-2015120668

PATIENT
  Age: 79 Year
  Sex: Female
  Weight: 95 kg

DRUGS (10)
  1. CELECOXIB. [Suspect]
     Active Substance: CELECOXIB
     Dosage: 200 MG, 1X/DAY
  2. CENTRUM SILVER [Concomitant]
     Active Substance: VITAMINS
     Dosage: ONE IN THE AM
  3. LOTREL [Concomitant]
     Active Substance: AMLODIPINE BESYLATE\BENAZEPRIL HYDROCHLORIDE
     Dosage: 10/40 MG ONE IN AM
  4. CLONIDINE. [Concomitant]
     Active Substance: CLONIDINE
     Dosage: 0.1MG ONE IN AM AND ONE IN PM
  5. FUROSEMIDE. [Concomitant]
     Active Substance: FUROSEMIDE
     Dosage: 20MG ONE IN AM
  6. CELEBREX [Suspect]
     Active Substance: CELECOXIB
     Dosage: UNK
  7. CARVIDOL [Concomitant]
     Dosage: 12.5 MG THREE IN AM AND THREE IN PM
  8. COENZYME Q10 [Concomitant]
     Active Substance: UBIDECARENONE
     Dosage: 100MG IN PM
  9. PRAVASTATIN [Concomitant]
     Active Substance: PRAVASTATIN\PRAVASTATIN SODIUM
     Dosage: 10 MG ONE IN AM
  10. ASPIRIN. [Concomitant]
     Active Substance: ASPIRIN
     Dosage: 81 MG ONE IN PM

REACTIONS (11)
  - Memory impairment [Not Recovered/Not Resolved]
  - Back pain [Unknown]
  - Mobility decreased [Not Recovered/Not Resolved]
  - Drug ineffective [Unknown]
  - Pain in extremity [Not Recovered/Not Resolved]
  - Bone pain [Unknown]
  - Pain [Unknown]
  - Vitamin B12 deficiency [Unknown]
  - Musculoskeletal pain [Not Recovered/Not Resolved]
  - Product dosage form confusion [Unknown]
  - Drug effect incomplete [Unknown]
